FAERS Safety Report 8336811-X (Version None)
Quarter: 2012Q2

REPORT INFORMATION
  Report Type: 
  Country: None (occurrence: None)
  Receive Date: 20120501
  Receipt Date: 20120416
  Transmission Date: 20120825
  Serious: Yes (Hospitalization)
  Sender: FDA-Public Use
  Company Number: ALK_02475_2012

PATIENT
  Sex: Female

DRUGS (1)
  1. VIVITROL [Suspect]
     Indication: ALCOHOLISM
     Dosage: (INTRAMUSCULAR)
     Route: 030
     Dates: start: 20120319

REACTIONS (2)
  - DYSARTHRIA [None]
  - UNEVALUABLE EVENT [None]
